FAERS Safety Report 6427943-1 (Version None)
Quarter: 2009Q4

REPORT INFORMATION
  Report Type: 
  Country: None (occurrence: None)
  Receive Date: 20091105
  Receipt Date: 20091022
  Transmission Date: 20100525
  Serious: Yes (Other)
  Sender: FDA-Public Use
  Company Number: PHHY2009JP43078

PATIENT
  Age: 45 Year
  Sex: Male

DRUGS (1)
  1. IMATINIB MESYLATE [Suspect]
     Indication: GASTROINTESTINAL STROMAL TUMOUR
     Dosage: 400 MG/DAY

REACTIONS (5)
  - DRY SKIN [None]
  - EOSINOPHIL COUNT INCREASED [None]
  - PRURITUS [None]
  - RASH [None]
  - TUMOUR EXCISION [None]
